FAERS Safety Report 16496642 (Version 1)
Quarter: 2019Q2

REPORT INFORMATION
  Report Type: Spontaneous
  Country: US (occurrence: US)
  Receive Date: 20190628
  Receipt Date: 20190628
  Transmission Date: 20190711
  Serious: No
  Sender: FDA-Public Use
  Company Number: US-SA-2019SA176459

PATIENT
  Sex: Female

DRUGS (1)
  1. DUPIXENT [Suspect]
     Active Substance: DUPILUMAB
     Dosage: UNK
     Dates: start: 201811

REACTIONS (3)
  - Oropharyngeal discomfort [Unknown]
  - Cough [Unknown]
  - Eyelids pruritus [Unknown]

NARRATIVE: CASE EVENT DATE: 201903
